FAERS Safety Report 8074389-9 (Version None)
Quarter: 2012Q1

REPORT INFORMATION
  Report Type: 
  Country: None (occurrence: None)
  Receive Date: 20120126
  Receipt Date: 20120123
  Transmission Date: 20120608
  Serious: Yes (Other)
  Sender: FDA-Public Use
  Company Number: US-GLAXOSMITHKLINE-A0962983A

PATIENT
  Age: 57 Year
  Sex: Female

DRUGS (4)
  1. CARVEDILOL [Suspect]
     Indication: CARDIAC FAILURE CONGESTIVE
     Dosage: 6.25MG TWICE PER DAY
     Route: 048
     Dates: start: 20110101, end: 20110101
  2. SYNTHROID [Concomitant]
  3. VOLTAREN [Concomitant]
  4. RESTASIS [Concomitant]

REACTIONS (1)
  - CARDIAC FAILURE CONGESTIVE [None]
